FAERS Safety Report 12606525 (Version 2)
Quarter: 2016Q3

REPORT INFORMATION
  Report Type: Spontaneous
  Country: US (occurrence: US)
  Receive Date: 20160729
  Receipt Date: 20160829
  Transmission Date: 20161109
  Serious: Yes (Other)
  Sender: FDA-Public Use
  Company Number: US-BAYER-2016-147635

PATIENT
  Age: 20 Year
  Sex: Female

DRUGS (3)
  1. IMITREX [Suspect]
     Active Substance: SUMATRIPTAN SUCCINATE
  2. ALEVE [Concomitant]
     Active Substance: NAPROXEN SODIUM
     Indication: MIGRAINE
  3. MIRENA [Suspect]
     Active Substance: LEVONORGESTREL
     Indication: CONTRACEPTION
     Dosage: 20 MCG/24HR, CONT
     Route: 015
     Dates: start: 20150219, end: 20160719

REACTIONS (12)
  - Amenorrhoea [None]
  - Loss of libido [None]
  - Panic attack [None]
  - Abdominal pain lower [None]
  - Dizziness [None]
  - Breast mass [None]
  - Weight loss poor [None]
  - Depressed mood [None]
  - Myalgia [None]
  - Post procedural discomfort [None]
  - Post procedural haemorrhage [Unknown]
  - Adverse reaction [None]

NARRATIVE: CASE EVENT DATE: 20160419
